FAERS Safety Report 4379753-7 (Version None)
Quarter: 2004Q2

REPORT INFORMATION
  Report Type: 
  Country: None (occurrence: None)
  Receive Date: 20040617
  Receipt Date: 20040608
  Transmission Date: 20050107
  Serious: Yes (Life-Threatening, Hospitalization)
  Sender: FDA-Public Use
  Company Number: ES-GLAXOSMITHKLINE-B0335701A

PATIENT
  Age: 82 Year
  Sex: Female

DRUGS (4)
  1. AVANDIA [Suspect]
     Dosage: 4MG PER DAY
     Route: 048
     Dates: start: 20031001, end: 20040119
  2. DIAMICRON [Suspect]
     Dosage: 80MG PER DAY
     Route: 048
     Dates: start: 20031001, end: 20040119
  3. EUTIROX [Suspect]
     Indication: DRUG USE FOR UNKNOWN INDICATION
     Dosage: 125MCG PER DAY
     Route: 048
     Dates: start: 20000101
  4. ROCALTROL [Suspect]
     Indication: DRUG USE FOR UNKNOWN INDICATION
     Dosage: 750MCG PER DAY
     Route: 048
     Dates: start: 20000101

REACTIONS (2)
  - CHOLELITHIASIS [None]
  - PANCREATITIS [None]
